FAERS Safety Report 7608000-5 (Version None)
Quarter: 2011Q3

REPORT INFORMATION
  Report Type: 
  Country: None (occurrence: None)
  Receive Date: 20110714
  Receipt Date: 20110711
  Transmission Date: 20111222
  Serious: No
  Sender: FDA-Public Use
  Company Number: US-PFIZER INC-2011122777

PATIENT
  Sex: Female

DRUGS (3)
  1. IBUPROFEN (ADVIL) [Suspect]
     Dosage: UNK
     Route: 048
  2. ULTRACET [Concomitant]
     Dosage: UNK
  3. PREVACID [Concomitant]
     Dosage: UNK

REACTIONS (2)
  - DYSPEPSIA [None]
  - ULCER [None]
